FAERS Safety Report 4716317-7 (Version None)
Quarter: 2005Q3

REPORT INFORMATION
  Report Type: 
  Country: None (occurrence: None)
  Receive Date: 20050711
  Receipt Date: 20050325
  Transmission Date: 20060218
  Serious: Yes (Other)
  Sender: FDA-Public Use
  Company Number: 399826

PATIENT
  Age: 43 Year
  Sex: Female
  Weight: 84.8 kg

DRUGS (12)
  1. CELLCEPT [Suspect]
     Indication: PROPHYLAXIS AGAINST TRANSPLANT REJECTION
     Dates: end: 20031015
  2. PROCRIT [Suspect]
     Indication: NEPHROGENIC ANAEMIA
     Dosage: 4000 IU PER WEEK SUBCUTANEOUS
     Route: 058
     Dates: start: 20000615
  3. PROGRAF [Concomitant]
  4. PREDNISONE [Concomitant]
  5. FOSAMAX [Concomitant]
  6. NORVASC [Concomitant]
  7. CLONIDINE [Concomitant]
  8. LASIX [Concomitant]
  9. SYNTHROID [Concomitant]
  10. LOPRESSOR [Concomitant]
  11. HYTRIN (TERZOSINUM) [Concomitant]
  12. IRON (IRON NOS) [Concomitant]

REACTIONS (1)
  - ANAEMIA [None]
